FAERS Safety Report 4323340-3 (Version None)
Quarter: 2004Q1

REPORT INFORMATION
  Report Type: 
  Country: None (occurrence: None)
  Receive Date: 20040323
  Receipt Date: 20040323
  Transmission Date: 20041129
  Serious: Yes (Life-Threatening, Hospitalization)
  Sender: FDA-Public Use
  Company Number: None

PATIENT
  Age: 54 Year
  Sex: Male
  Weight: 116.6 kg

DRUGS (7)
  1. METFORMIN HYDROCHLORIDE [Suspect]
  2. NADOLOL [Concomitant]
  3. RABEPRAZOLE NA [Concomitant]
  4. GLYBURIDE [Concomitant]
  5. SILDENAFIL CITRATE [Concomitant]
  6. SALSALATE [Concomitant]
  7. URSODIOL [Concomitant]

REACTIONS (3)
  - CONFUSIONAL STATE [None]
  - HYPOTENSION [None]
  - LACTIC ACIDOSIS [None]
